FAERS Safety Report 4448331-3 (Version None)
Quarter: 2004Q3

REPORT INFORMATION
  Report Type: 
  Country: None (occurrence: None)
  Receive Date: 20040913
  Receipt Date: 20040830
  Transmission Date: 20050211
  Serious: Yes (Hospitalization)
  Sender: FDA-Public Use
  Company Number: 2004060538

PATIENT
  Sex: Female

DRUGS (3)
  1. AMLODIPINE [Suspect]
     Indication: CORONARY ARTERY DISEASE
  2. ALL OTHER THERAPEUTIC PRODUCTS (ALL OTHER THERAPEUTIC PRODUCTS) [Concomitant]
  3. VERAPAMIL HCL [Concomitant]

REACTIONS (1)
  - ARTERIOSPASM CORONARY [None]
